FAERS Safety Report 6611323-X (Version None)
Quarter: 2010Q1

REPORT INFORMATION
  Report Type: 
  Country: None (occurrence: None)
  Receive Date: 20100301
  Receipt Date: 20100301
  Transmission Date: 20100710
  Serious: No
  Sender: FDA-Public Use
  Company Number: None

PATIENT
  Sex: Female
  Weight: 79.3795 kg

DRUGS (2)
  1. CIPROFLOXACIN [Suspect]
     Indication: DIVERTICULITIS
     Dosage: 2 TABS BID PO
     Route: 048
     Dates: start: 20100212, end: 20100222
  2. METRONIDAZOLE [Suspect]
     Dosage: 1 TAB QID PO
     Route: 048
     Dates: start: 20100212, end: 20100222

REACTIONS (3)
  - ARTHRALGIA [None]
  - DRUG HYPERSENSITIVITY [None]
  - MYALGIA [None]
